FAERS Safety Report 6734797-2 (Version None)
Quarter: 2010Q2

REPORT INFORMATION
  Report Type: 
  Country: None (occurrence: None)
  Receive Date: 20100521
  Receipt Date: 20100513
  Transmission Date: 20101027
  Serious: Yes (Hospitalization)
  Sender: FDA-Public Use
  Company Number: US-BIOGENIDEC-2010BI013070

PATIENT
  Age: 53 Year
  Sex: Female

DRUGS (3)
  1. AVONEX [Suspect]
     Indication: MULTIPLE SCLEROSIS
     Route: 030
     Dates: start: 19960519
  2. AVONEX [Suspect]
     Route: 030
     Dates: start: 20040801
  3. AVONEX [Suspect]
     Route: 030
     Dates: start: 20100120

REACTIONS (1)
  - METASTATIC MALIGNANT MELANOMA [None]
